FAERS Safety Report 4898505-2 (Version None)
Quarter: 2006Q1

REPORT INFORMATION
  Report Type: 
  Country: None (occurrence: None)
  Receive Date: 20060130
  Receipt Date: 20060113
  Transmission Date: 20060701
  Serious: Yes (Hospitalization)
  Sender: FDA-Public Use
  Company Number: 2003IM000654

PATIENT
  Age: 26 Year
  Sex: Female

DRUGS (3)
  1. ADAFERON (A643-INTERFERON ALFACON-1) [Suspect]
     Indication: HEPATITIS C
     Dosage: 12 MU, QD, SUBCUTANEOUS
     Route: 058
     Dates: start: 20020903, end: 20020918
  2. DICLOFENAC SODIUM [Concomitant]
  3. BROTIZOLAM [Concomitant]

REACTIONS (8)
  - ANXIETY [None]
  - DEPRESSION [None]
  - DRUG INEFFECTIVE [None]
  - HEADACHE [None]
  - INSOMNIA [None]
  - IRRITABILITY [None]
  - MANIA [None]
  - STRESS [None]
